FAERS Safety Report 25814807 (Version 1)
Quarter: 2025Q3

REPORT INFORMATION
  Report Type: Spontaneous
  Country: US (occurrence: US)
  Receive Date: 20250917
  Receipt Date: 20250917
  Transmission Date: 20251021
  Serious: No
  Sender: AMGEN
  Company Number: US-AMGEN-USASP2025181322

PATIENT
  Age: 65 Year
  Sex: Female

DRUGS (2)
  1. REPATHA [Suspect]
     Active Substance: EVOLOCUMAB
     Indication: Product used for unknown indication
     Dosage: 140 MILLIGRAM, Q2WK
     Route: 065
  2. REPATHA [Suspect]
     Active Substance: EVOLOCUMAB
     Dosage: 140 MILLIGRAM, QMO
     Route: 065
     Dates: start: 2025

REACTIONS (3)
  - Low density lipoprotein decreased [Unknown]
  - Lethargy [Unknown]
  - Asthenia [Unknown]

NARRATIVE: CASE EVENT DATE: 20250101
